FAERS Safety Report 4305862-4 (Version None)
Quarter: 2004Q1

REPORT INFORMATION
  Report Type: 
  Country: None (occurrence: None)
  Receive Date: 20040225
  Receipt Date: 20030131
  Transmission Date: 20041129
  Serious: Yes (Other)
  Sender: FDA-Public Use
  Company Number: 2003-ES-00018ES

PATIENT

DRUGS (1)
  1. MICARDIS HCT [Suspect]
     Indication: HYPERTENSION
     Dosage: SEE TEXT (SEE TEXT), PO
     Route: 048

REACTIONS (3)
  - DYSPNOEA [None]
  - GASTROINTESTINAL PAIN [None]
  - HAEMATURIA [None]
